FAERS Safety Report 14404126 (Version 2)
Quarter: 2019Q1

REPORT INFORMATION
  Report Type: Spontaneous
  Country: US (occurrence: US)
  Receive Date: 20180117
  Receipt Date: 20190325
  Transmission Date: 20190417
  Serious: No
  Sender: FDA-Public Use
  Company Number: US-PFIZER INC-2018018907

PATIENT
  Age: 72 Year
  Sex: Female
  Weight: 97.51 kg

DRUGS (1)
  1. AROMASIN [Suspect]
     Active Substance: EXEMESTANE
     Indication: BREAST CANCER
     Dosage: 25 MG, DAILY
     Route: 048
     Dates: start: 201112

REACTIONS (1)
  - Influenza [Unknown]
